FAERS Safety Report 6717895-9 (Version None)
Quarter: 2010Q2

REPORT INFORMATION
  Report Type: 
  Country: None (occurrence: None)
  Receive Date: 20100504
  Receipt Date: 20100419
  Transmission Date: 20101027
  Serious: Yes (Hospitalization)
  Sender: FDA-Public Use
  Company Number: 007184

PATIENT
  Sex: Female

DRUGS (8)
  1. CERTOLIZUMAB PEGOL [Suspect]
     Indication: RHEUMATOID ARTHRITIS
     Dosage: (400 MG 1X/2 WEEKS SUBCUTANEOUS)
     Route: 058
     Dates: start: 20090608, end: 20100121
  2. PREDNISONE [Concomitant]
  3. METHOTREXATE [Concomitant]
  4. FOLIC ACID [Concomitant]
  5. LEXAPRO [Concomitant]
  6. WELLBUTRIN [Concomitant]
  7. ACTONEL [Concomitant]
  8. LASIX [Concomitant]

REACTIONS (5)
  - ATELECTASIS [None]
  - INFLAMMATION [None]
  - LEUKOPENIA [None]
  - PNEUMONIA [None]
  - PULMONARY OEDEMA [None]
